FAERS Safety Report 10994196 (Version 3)
Quarter: 2015Q2

REPORT INFORMATION
  Report Type: Spontaneous
  Country: US (occurrence: US)
  Receive Date: 20150407
  Receipt Date: 20150414
  Transmission Date: 20150821
  Serious: Yes (Life-Threatening, Hospitalization)
  Sender: FDA-Public Use
  Company Number: US-PFIZER INC-2015066975

PATIENT
  Age: 79 Year
  Sex: Female
  Weight: 64 kg

DRUGS (2)
  1. LYRICA [Suspect]
     Active Substance: PREGABALIN
     Indication: NEUROPATHY PERIPHERAL
     Dosage: 100 MG, 3X/DAY
     Dates: end: 201308
  2. LYRICA [Suspect]
     Active Substance: PREGABALIN
     Dosage: 150 MG,3X/DAY

REACTIONS (2)
  - Limb discomfort [Unknown]
  - Cerebrovascular accident [Recovered/Resolved]

NARRATIVE: CASE EVENT DATE: 201308
